FAERS Safety Report 13932593 (Version 2)
Quarter: 2018Q3

REPORT INFORMATION
  Report Type: Report from Study
  Country: KR (occurrence: KR)
  Receive Date: 20170904
  Receipt Date: 20180731
  Transmission Date: 20181010
  Serious: Yes (Hospitalization)
  Sender: FDA-Public Use
  Company Number: KR-ROCHE-1985677

PATIENT
  Age: 53 Year
  Sex: Female
  Weight: 50.2 kg

DRUGS (46)
  1. ONSERAN [Concomitant]
     Route: 042
     Dates: start: 20160825, end: 20160825
  2. ZOMETA [Concomitant]
     Active Substance: ZOLEDRONIC ACID
     Indication: HYPERCALCAEMIA
     Dosage: 25/AUG/2016, 20/SEP/2016, 11/OCT/2016, 01/NOV/2016, 22/NOV/2016, 13/DEC/2016, 10/JAN/2017, 31/JAN/20
     Route: 042
     Dates: start: 20160714, end: 20160714
  3. PENIRAMIN [Concomitant]
     Dosage: 04/AUG/2016, 25/AUG/2016, 20/SEP/2016, 11/OCT/2016, 01/NOV/2016, 22/NOV/2016, 13/DEC/2016, 10/JAN/20
     Route: 042
     Dates: start: 20160714, end: 20160714
  4. GASMOTIN [Concomitant]
     Active Substance: MOSAPRIDE CITRATE
     Route: 048
     Dates: start: 20160802
  5. ONSERAN [Concomitant]
     Route: 042
     Dates: start: 20161011, end: 20161011
  6. STOGAR [Concomitant]
     Active Substance: LAFUTIDINE
     Route: 065
     Dates: start: 20141120
  7. CITOPCIN [Concomitant]
     Indication: INFECTION
     Route: 042
     Dates: start: 20160728, end: 20160728
  8. CITOPCIN [Concomitant]
     Route: 042
     Dates: start: 20160729, end: 20160729
  9. ACETAMINOPHEN. [Concomitant]
     Active Substance: ACETAMINOPHEN
     Route: 048
     Dates: start: 20160714, end: 20160714
  10. STILLEN [Concomitant]
     Route: 048
     Dates: start: 20160411, end: 20160728
  11. FEROBA?YOU SR [Concomitant]
     Route: 048
     Dates: start: 20141127
  12. CORTISOLU [Concomitant]
     Active Substance: HYDROCORTISONE SODIUM SUCCINATE
     Dosage: 04/AUG/2016, 25/AUG/2016, 20/SEP/2016, 11/OCT/2016, 01/NOV/2016, 22/NOV/2016, 13/DEC/2016, 10/JAN/20
     Route: 042
     Dates: start: 20160714, end: 20160714
  13. CORTISOLU [Concomitant]
     Active Substance: HYDROCORTISONE SODIUM SUCCINATE
     Route: 042
     Dates: start: 20170822, end: 20170822
  14. MARINASOL [Concomitant]
     Dosage: ON 11/OCT/2016 TO 11/OCT/2016, 01/NOV/2016 TO 01/NOV/2016, 22/NOV/2016 TO 22/NOV/2016, 10/JAN/2017 T
     Route: 042
     Dates: start: 20160920, end: 20160920
  15. MAGO (SOUTH KOREA) [Concomitant]
     Indication: CONSTIPATION
     Route: 048
     Dates: start: 20160801, end: 20160812
  16. CLANZA CR [Concomitant]
     Active Substance: ACECLOFENAC
     Indication: PAIN IN EXTREMITY
     Route: 048
     Dates: start: 20160715, end: 20160715
  17. PENIRAMIN [Concomitant]
     Route: 042
     Dates: start: 20170822, end: 20170822
  18. TRASTUZUMAB EMTANSINE [Suspect]
     Active Substance: ADO-TRASTUZUMAB EMTANSINE
     Indication: BREAST CANCER METASTATIC
     Dosage: 04/AUG/2016, 25/AUG/2016, 20/SEP/2016, 11/NOV/2016, 01/NOV/2016, 22/NOV/2016, 13/DEC/2016, 10/JAN/20
     Route: 065
     Dates: start: 20160714
  19. ONSERAN [Concomitant]
     Route: 042
     Dates: start: 20161122, end: 20161122
  20. ONSERAN [Concomitant]
     Dosage: 13/DEC/2016, 10/JAN/2017, 31/JAN/2017, 28/FEB/2017, 21/MAR/2017, 11/APR/2017, 02/MAY/2017, 30/MAY/20
     Route: 042
     Dates: start: 20170822, end: 20170822
  21. CEFPROZIL. [Concomitant]
     Active Substance: CEFPROZIL
     Route: 048
     Dates: start: 20170620, end: 20170626
  22. MUCOPECT [Concomitant]
     Indication: PRODUCTIVE COUGH
     Dosage: ON 02/MAY/2017 TO 08/MAY/2017, 23/MAY/2017 TO 29/MAY/2017
     Route: 048
     Dates: start: 20170411, end: 20170417
  23. K?CONTIN [Concomitant]
     Route: 048
     Dates: start: 20160728, end: 20160728
  24. MEGACE F [Concomitant]
     Route: 065
     Dates: start: 20160212
  25. ZOMETA [Concomitant]
     Active Substance: ZOLEDRONIC ACID
     Route: 042
     Dates: start: 20170801, end: 20170801
  26. BEAROBAN [Concomitant]
     Route: 065
     Dates: start: 20160713, end: 20160812
  27. GASTER (SOUTH KOREA) [Concomitant]
     Dosage: 04/AUG/2016, 25/AUG/2016, 20/SEP/2016, 11/OCT/2016, 01/NOV/2016, 22/NOV/2016, 13/DEC/2016, 01/JAN/20
     Route: 042
     Dates: start: 20160714, end: 20160714
  28. GASTER (SOUTH KOREA) [Concomitant]
     Route: 042
     Dates: start: 20170822, end: 20170822
  29. ZOMEBON [Concomitant]
     Indication: HYPERCALCAEMIA
     Route: 042
     Dates: start: 20170822, end: 20170822
  30. PENIRAMIN [Concomitant]
     Indication: URTICARIAL VASCULITIS
     Dosage: 30/JUL/2016 TO 30/JUL/2016
     Route: 042
     Dates: start: 20160728, end: 20160728
  31. ONSERAN [Concomitant]
     Route: 042
     Dates: start: 20161101, end: 20161101
  32. XANAX [Concomitant]
     Active Substance: ALPRAZOLAM
     Route: 048
     Dates: start: 20160411, end: 20160728
  33. FREAMINE III NOS [Concomitant]
     Active Substance: AMINO ACIDS
     Dosage: 28/FEB/2017, 21/MAR/2017, 11/APR/2017, 02/MAY/2017, 30/MAY/2017, 20/JUN/2017, 11/JUL/2017, 01/AUG/20
     Route: 042
     Dates: start: 20170131, end: 20170131
  34. FREAMINE III NOS [Concomitant]
     Active Substance: AMINO ACIDS
     Route: 042
     Dates: start: 20170822, end: 20170822
  35. GASMOTIN [Concomitant]
     Active Substance: MOSAPRIDE CITRATE
     Indication: GASTRITIS
     Route: 048
     Dates: start: 20160801, end: 20160801
  36. ONSERAN [Concomitant]
     Indication: VOMITING
     Route: 042
     Dates: start: 20160714, end: 20160714
  37. ONSERAN [Concomitant]
     Route: 042
     Dates: start: 20160804, end: 20160804
  38. ONSERAN [Concomitant]
     Route: 042
     Dates: start: 20160920, end: 20160920
  39. ACETAMINOPHEN. [Concomitant]
     Active Substance: ACETAMINOPHEN
     Dosage: 20/SEP/2016, 11/OCT/2016, 01/NOV/2016, 22/NOV/2016, 13/DEC/2016, 10/JAN/2017, 31/JAN/2017, 28/FEB/20
     Route: 048
     Dates: start: 20170822, end: 20170822
  40. MELAX (MELOXICAM) [Concomitant]
     Route: 048
     Dates: start: 20160411, end: 20160717
  41. TARGIN [Concomitant]
     Active Substance: NALOXONE HYDROCHLORIDE\OXYCODONE HYDROCHLORIDE
     Route: 048
     Dates: start: 20170801
  42. TARGIN [Concomitant]
     Active Substance: NALOXONE HYDROCHLORIDE\OXYCODONE HYDROCHLORIDE
     Route: 048
     Dates: start: 20151119
  43. PARAMACET [Concomitant]
     Active Substance: ACETAMINOPHEN\TRAMADOL
     Indication: PAIN IN EXTREMITY
     Route: 048
     Dates: start: 20160620, end: 20160717
  44. MUTERAN [Concomitant]
     Active Substance: ACETYLCYSTEINE
     Route: 048
     Dates: start: 20170620, end: 20170626
  45. HELPOVIN [Concomitant]
     Indication: HEPATITIS
     Route: 042
     Dates: start: 20160728, end: 20160801
  46. CITOPCIN [Concomitant]
     Route: 042
     Dates: start: 20160730, end: 20160830

REACTIONS (4)
  - Upper respiratory tract infection [Recovered/Resolved]
  - Urticarial vasculitis [Recovered/Resolved]
  - Pyrexia [Recovered/Resolved]
  - Middle ear effusion [Recovered/Resolved]

NARRATIVE: CASE EVENT DATE: 20160715
